FAERS Safety Report 5535780-5 (Version None)
Quarter: 2007Q4

REPORT INFORMATION
  Report Type: 
  Country: None (occurrence: None)
  Receive Date: 20071204
  Receipt Date: 20071119
  Transmission Date: 20080405
  Serious: Yes (Hospitalization)
  Sender: FDA-Public Use
  Company Number: FACT0700225

PATIENT
  Age: 79 Year
  Sex: Male

DRUGS (8)
  1. FACTIVE [Suspect]
     Indication: PNEUMONIA
     Dosage: 320 MG, ORAL
     Route: 048
     Dates: start: 20071113
  2. CEFTRIAXONE [Concomitant]
  3. GLYBURIDE (GLIBENCLAMIDE, METFORMIN HYDROCHLORIDE) [Concomitant]
  4. LISINOPRIL [Concomitant]
  5. SIMVASTATIN [Concomitant]
  6. TAMSULOSIN HCL [Concomitant]
  7. BISOPROLOL FUMARATE [Concomitant]
  8. CLOPIDOGREL [Concomitant]

REACTIONS (1)
  - BLOOD GLUCOSE DECREASED [None]
